FAERS Safety Report 5366544-3 (Version None)
Quarter: 2007Q2

REPORT INFORMATION
  Report Type: 
  Country: None (occurrence: None)
  Receive Date: 20070622
  Receipt Date: 20070611
  Transmission Date: 20071010
  Serious: Yes (Other)
  Sender: FDA-Public Use
  Company Number: US-PFIZER INC-2007048264

PATIENT
  Sex: Female
  Weight: 68.181 kg

DRUGS (4)
  1. LYRICA [Suspect]
     Indication: FIBROMYALGIA
  2. LYRICA [Suspect]
     Indication: PAIN
  3. XANAX [Concomitant]
  4. WELLBUTRIN [Concomitant]

REACTIONS (7)
  - ACTIVITIES OF DAILY LIVING IMPAIRED [None]
  - APHASIA [None]
  - BALANCE DISORDER [None]
  - DRUG INEFFECTIVE [None]
  - DRY EYE [None]
  - GENERALISED OEDEMA [None]
  - WEIGHT INCREASED [None]
